FAERS Safety Report 24389347 (Version 1)
Quarter: 2024Q4

REPORT INFORMATION
  Report Type: Report from Study
  Country: CO (occurrence: CO)
  Receive Date: 20241003
  Receipt Date: 20241003
  Transmission Date: 20250115
  Serious: Yes (Other)
  Sender: ABBVIE
  Company Number: CO-JNJFOC-20240970951

PATIENT
  Age: 74 Year
  Sex: Male
  Weight: 64 kg

DRUGS (2)
  1. IMBRUVICA [Suspect]
     Active Substance: IBRUTINIB
     Indication: Mantle cell lymphoma
     Route: 048
     Dates: start: 20240619, end: 20240829
  2. UNSPECIFIED INGREDIENT [Concomitant]
     Active Substance: UNSPECIFIED INGREDIENT
     Indication: Product used for unknown indication
     Route: 065

REACTIONS (2)
  - Arterial therapeutic procedure [Recovered/Resolved]
  - Cardiac arrest [Unknown]

NARRATIVE: CASE EVENT DATE: 20240909
